FAERS Safety Report 10605830 (Version 2)
Quarter: 2014Q4

REPORT INFORMATION
  Report Type: Report from Study
  Country: US (occurrence: US)
  Receive Date: 20141125
  Receipt Date: 20141205
  Transmission Date: 20150529
  Serious: Yes (Other)
  Sender: FDA-Public Use
  Company Number: US-ROCHE-1492986

PATIENT
  Age: 61 Year
  Sex: Female

DRUGS (3)
  1. NUTROPIN AQ [Suspect]
     Active Substance: SOMATROPIN
     Indication: PRODUCT USED FOR UNKNOWN INDICATION
     Dosage: NAQ 20MG PEN
     Route: 058
     Dates: start: 2009, end: 2012
  2. NUTROPIN AQ [Suspect]
     Active Substance: SOMATROPIN
     Route: 058
     Dates: end: 20141118
  3. NUTROPIN AQ [Suspect]
     Active Substance: SOMATROPIN
     Route: 058
     Dates: start: 2013

REACTIONS (9)
  - Posterior reversible encephalopathy syndrome [Unknown]
  - Foot fracture [Unknown]
  - Overdose [Unknown]
  - Seizure [Unknown]
  - Drug dose omission [Unknown]
  - Tremor [Not Recovered/Not Resolved]
  - Renal failure [Unknown]
  - Cerebrovascular accident [Unknown]
  - Confusional state [Not Recovered/Not Resolved]

NARRATIVE: CASE EVENT DATE: 2012
